FAERS Safety Report 9031066 (Version 1)
Quarter: 2013Q1

REPORT INFORMATION
  Report Type: Spontaneous
  Country: KR (occurrence: KR)
  Receive Date: 20130123
  Receipt Date: 20130123
  Transmission Date: 20140127
  Serious: Yes (Hospitalization)
  Sender: FDA-Public Use
  Company Number: KR-009507513-1301KOR009649

PATIENT
  Age: 65 Year
  Sex: Male

DRUGS (1)
  1. NASONEX [Suspect]
     Indication: RHINITIS ALLERGIC
     Dosage: UNK
     Route: 045
     Dates: start: 201204

REACTIONS (2)
  - Nasal cyst [Unknown]
  - Expired drug administered [Unknown]
